FAERS Safety Report 10364946 (Version 1)
Quarter: 2014Q1

REPORT INFORMATION
  Report Type: Spontaneous
  Country: US (occurrence: None)
  Receive Date: 20140306
  Receipt Date: 20140306
  Transmission Date: 20141002
  Serious: Yes (Other)
  Sender: FDA-Public Use
  Company Number: 163-21880-13063160

PATIENT
  Age: 72 Year
  Sex: Female
  Weight: 69 kg

DRUGS (9)
  1. REVLIMID [Suspect]
     Indication: PLASMA CELL MYELOMA
     Route: 048
     Dates: start: 201002
  2. DEXAMETHASONE [Concomitant]
  3. TOPROL [Concomitant]
  4. VITAMIN D [Concomitant]
  5. OMEPRAZOLE [Concomitant]
  6. ENOXAPARIN [Concomitant]
  7. DIOVAN [Concomitant]
  8. METOPROLOL SUCCINATE [Concomitant]
  9. LORTAB [Concomitant]

REACTIONS (1)
  - Thrombosis [None]
